FAERS Safety Report 5021596-5 (Version None)
Quarter: 2006Q2

REPORT INFORMATION
  Report Type: 
  Country: None (occurrence: None)
  Receive Date: 20060605
  Receipt Date: 20060523
  Transmission Date: 20061013
  Serious: Yes (Hospitalization)
  Sender: FDA-Public Use
  Company Number: 2006067844

PATIENT
  Sex: 0

DRUGS (1)
  1. SUTENT [Suspect]
     Indication: ILL-DEFINED DISORDER

REACTIONS (3)
  - FALL [None]
  - NAUSEA [None]
  - VOMITING [None]
